FAERS Safety Report 5924850-5 (Version None)
Quarter: 2008Q4

REPORT INFORMATION
  Report Type: 
  Country: None (occurrence: None)
  Receive Date: 20081020
  Receipt Date: 20081020
  Transmission Date: 20090506
  Serious: Yes (Life-Threatening)
  Sender: FDA-Public Use
  Company Number: None

PATIENT
  Sex: Female

DRUGS (1)
  1. NITROQUICK 0.4MG ETHEX [Suspect]
     Indication: ANGINA PECTORIS
     Dosage: 1 PRN SL
     Route: 060
     Dates: start: 20080720, end: 20081019

REACTIONS (1)
  - PRODUCT QUALITY ISSUE [None]
